FAERS Safety Report 17892431 (Version 3)
Quarter: 2020Q2

REPORT INFORMATION
  Report Type: Report from Study
  Country: GT (occurrence: GT)
  Receive Date: 20200612
  Receipt Date: 20200624
  Transmission Date: 20200714
  Serious: Yes (Hospitalization)
  Sender: FDA-Public Use
  Company Number: GT-009507513-2004GTM005470

PATIENT
  Age: 54 Year
  Sex: Female
  Weight: 48.53 kg

DRUGS (5)
  1. OLAPARIB. [Suspect]
     Active Substance: OLAPARIB
     Indication: ENDOMETRIAL CANCER
     Dosage: 300 MILLIGRAM, BID
     Route: 048
     Dates: start: 20191029, end: 20200331
  2. LOSARTAN POTASSIUM. [Concomitant]
     Active Substance: LOSARTAN POTASSIUM
     Indication: HYPERTENSION
     Dosage: 50 MILLIGRAM, ONCE
     Route: 048
     Dates: start: 201407
  3. RIVAROXABAN [Concomitant]
     Active Substance: RIVAROXABAN
     Indication: PELVIC VENOUS THROMBOSIS
     Dosage: 20 MILLIGRAM, QD
     Route: 048
     Dates: start: 20191108, end: 20200416
  4. BLOOD CELLS, RED [Concomitant]
     Active Substance: HUMAN RED BLOOD CELL
     Indication: ANAEMIA
     Dosage: 500 MILLILITER, BID
     Route: 042
     Dates: start: 20200401, end: 20200401
  5. ERTAPENEM SODIUM [Suspect]
     Active Substance: ERTAPENEM SODIUM
     Indication: SOFT TISSUE INFECTION
     Dosage: 1 GRAM, QD
     Route: 042
     Dates: start: 20200418, end: 20200527

REACTIONS (2)
  - Thrombocytopenia [Recovered/Resolved]
  - Soft tissue infection [Recovered/Resolved]

NARRATIVE: CASE EVENT DATE: 20200409
